FAERS Safety Report 19936269 (Version 1)
Quarter: 2021Q4

REPORT INFORMATION
  Report Type: Spontaneous
  Country: BR (occurrence: BR)
  Receive Date: 20211008
  Receipt Date: 20211008
  Transmission Date: 20220303
  Serious: Yes (Other)
  Sender: FDA-Public Use
  Company Number: BR-ORGANON-O2110BRA000639

PATIENT
  Age: 50 Year
  Sex: Male
  Weight: 70 kg

DRUGS (4)
  1. NASONEX [Suspect]
     Active Substance: MOMETASONE FUROATE
     Indication: Hypersensitivity
     Dosage: 1 SPRAY INTO EACH NOSTRIL ONCE DAILY FOR 7 DAYS, WHEN IN CRISIS
     Route: 045
     Dates: start: 2015, end: 2019
  2. EZETEC [Concomitant]
     Indication: Hypersensitivity
     Dosage: 1 TABLET A DAY FOR 7 DAYS
     Route: 048
  3. CETIRIZINE HYDROCHLORIDE [Concomitant]
     Active Substance: CETIRIZINE HYDROCHLORIDE
     Indication: Hypersensitivity
     Dosage: 1 TABLET A DAY FOR 7 DAYS
     Route: 048
  4. BUDESONIDE [Concomitant]
     Active Substance: BUDESONIDE
     Dosage: UNK

REACTIONS (7)
  - Tuberculosis [Recovered/Resolved]
  - Zika virus infection [Recovered/Resolved]
  - Chikungunya virus infection [Recovered/Resolved]
  - Dermatitis allergic [Unknown]
  - Arthropod bite [Unknown]
  - Hypersensitivity [Not Recovered/Not Resolved]
  - Intentional product use issue [Unknown]

NARRATIVE: CASE EVENT DATE: 20160101
